FAERS Safety Report 6106109-9 (Version None)
Quarter: 2009Q1

REPORT INFORMATION
  Report Type: 
  Country: None (occurrence: None)
  Receive Date: 20090306
  Receipt Date: 20090226
  Transmission Date: 20090719
  Serious: Yes (Life-Threatening, Hospitalization)
  Sender: FDA-Public Use
  Company Number: NL-WYE-H08394709

PATIENT
  Age: 63 Year
  Sex: Male
  Weight: 70 kg

DRUGS (5)
  1. PANTOZOL [Suspect]
     Indication: ABDOMINAL PAIN UPPER
     Route: 048
     Dates: start: 20090212, end: 20090212
  2. FLUIMUCIL [Concomitant]
     Dosage: UNSPECIFIED
     Route: 048
  3. SERETIDE [Concomitant]
     Dosage: UNSPECIFIED
     Route: 055
  4. AUGMENTIN [Concomitant]
     Dosage: 1 DF, 3 IN 1 DAY
     Route: 048
     Dates: start: 20090211
  5. SPIRIVA [Concomitant]
     Dosage: UNSPECIFIED
     Route: 055

REACTIONS (3)
  - DYSPNOEA [None]
  - PRURITUS [None]
  - STRIDOR [None]
